FAERS Safety Report 15618225 (Version 1)
Quarter: 2018Q4

REPORT INFORMATION
  Report Type: Spontaneous
  Country: JP (occurrence: JP)
  Receive Date: 20181114
  Receipt Date: 20181114
  Transmission Date: 20190205
  Serious: Yes (Hospitalization)
  Sender: FDA-Public Use
  Company Number: JP-PFIZER INC-2018458915

PATIENT
  Age: 82 Year
  Sex: Female
  Weight: 44.2 kg

DRUGS (15)
  1. CALFINA [Concomitant]
     Active Substance: ALFACALCIDOL
  2. LYRICA [Concomitant]
     Active Substance: PREGABALIN
  3. RIMATIL [Concomitant]
     Active Substance: BUCILLAMINE
  4. LECTISOL [Concomitant]
     Active Substance: DAPSONE
  5. NEUROTROPIN [RABBIT VACCINIA EXTRACT] [Concomitant]
  6. CLOPIDOGREL [Concomitant]
     Active Substance: CLOPIDOGREL BISULFATE
  7. PICILLIBACTA [Suspect]
     Active Substance: AMPICILLIN SODIUM\SULBACTAM SODIUM
     Indication: PNEUMONIA
     Dosage: 9 G, DAILY
     Route: 041
     Dates: start: 20180715, end: 20180723
  8. SALAGEN [Concomitant]
     Active Substance: PILOCARPINE HYDROCHLORIDE
  9. BROTIZOLAM [Concomitant]
     Active Substance: BROTIZOLAM
  10. SALAZOPYRIN 500MG [Suspect]
     Active Substance: SULFASALAZINE
     Dosage: 1000 MG, 1X/DAY
     Route: 048
     Dates: start: 20160902, end: 20180806
  11. NICORANDIL [Concomitant]
     Active Substance: NICORANDIL
  12. OMEPRAZON [Concomitant]
     Active Substance: OMEPRAZOLE
  13. PICILLIBACTA [Suspect]
     Active Substance: AMPICILLIN SODIUM\SULBACTAM SODIUM
     Indication: BRONCHITIS
  14. METHYCOBAL [Concomitant]
     Active Substance: METHYLCOBALAMIN
  15. IMIDAPRIL HYDROCHLORIDE [Concomitant]
     Active Substance: IMIDAPRIL HYDROCHLORIDE

REACTIONS (9)
  - Bronchitis [Unknown]
  - Dermatitis exfoliative generalised [Recovered/Resolved]
  - Liver disorder [Recovering/Resolving]
  - Rash [Recovered/Resolved]
  - Tachycardia [Recovering/Resolving]
  - Pyrexia [Recovering/Resolving]
  - Lymphadenopathy [Unknown]
  - Pneumonia [Unknown]
  - Drug reaction with eosinophilia and systemic symptoms [Recovered/Resolved]

NARRATIVE: CASE EVENT DATE: 2018
